FAERS Safety Report 6795384-3 (Version None)
Quarter: 2010Q2

REPORT INFORMATION
  Report Type: 
  Country: None (occurrence: None)
  Receive Date: 20100625
  Receipt Date: 20100618
  Transmission Date: 20101027
  Serious: Yes (Hospitalization, Other)
  Sender: FDA-Public Use
  Company Number: US-JNJFOC-20100606463

PATIENT
  Sex: Female
  Weight: 102.06 kg

DRUGS (1)
  1. DURAGESIC-100 [Suspect]
     Indication: CANCER PAIN
     Route: 062

REACTIONS (8)
  - ABDOMINAL NEOPLASM [None]
  - ABDOMINAL PAIN [None]
  - ADVERSE EVENT [None]
  - BODY HEIGHT DECREASED [None]
  - DYSPHAGIA [None]
  - HAEMORRHAGE [None]
  - HYPOPHAGIA [None]
  - WEIGHT DECREASED [None]
